FAERS Safety Report 4673830-9 (Version None)
Quarter: 2005Q2

REPORT INFORMATION
  Report Type: 
  Country: None (occurrence: None)
  Receive Date: 20050524
  Receipt Date: 20050510
  Transmission Date: 20051028
  Serious: Yes (Hospitalization)
  Sender: FDA-Public Use
  Company Number: DE_050515913

PATIENT
  Age: 55 Year
  Sex: Male

DRUGS (3)
  1. GEMZAR [Suspect]
     Indication: NON-SMALL CELL LUNG CANCER
     Dosage: 1000 MG/M2
  2. CISPLATIN [Concomitant]
  3. CORTICOID [Concomitant]

REACTIONS (3)
  - BLOOD PRESSURE INCREASED [None]
  - CORONARY ARTERY STENOSIS [None]
  - INFUSION RELATED REACTION [None]
